FAERS Safety Report 12224637 (Version 1)
Quarter: 2016Q1

REPORT INFORMATION
  Report Type: Spontaneous
  Country: AU (occurrence: AU)
  Receive Date: 20160331
  Receipt Date: 20160331
  Transmission Date: 20160526
  Serious: Yes (Other)
  Sender: FDA-Public Use
  Company Number: AU-HOSPIRA-3227568

PATIENT
  Age: 64 Year
  Sex: Male

DRUGS (5)
  1. NEOSTIGMINE [Suspect]
     Active Substance: NEOSTIGMINE
     Indication: COLONIC PSEUDO-OBSTRUCTION
     Dosage: OVER 20 HOURS
     Route: 042
  2. NEOSTIGMINE [Suspect]
     Active Substance: NEOSTIGMINE
     Indication: COLONIC PSEUDO-OBSTRUCTION
     Dosage: OVER 20 HOURS
     Route: 042
  3. DEXMEDETOMIDINE HYDROCHLORIDE. [Suspect]
     Active Substance: DEXMEDETOMIDINE HYDROCHLORIDE
     Indication: SEDATIVE THERAPY
     Dosage: 0.8 MG/KG/H
     Route: 041
  4. DEXMEDETOMIDINE HYDROCHLORIDE. [Suspect]
     Active Substance: DEXMEDETOMIDINE HYDROCHLORIDE
     Indication: SEDATIVE THERAPY
     Dosage: MAXIMAL RATE OF 1 MG/KG/H
     Route: 041
  5. NEOSTIGMINE [Suspect]
     Active Substance: NEOSTIGMINE
     Indication: COLONIC PSEUDO-OBSTRUCTION
     Dosage: OVER 5 HOURS
     Route: 042

REACTIONS (3)
  - Hypotension [Recovered/Resolved]
  - Bradycardia [Recovered/Resolved]
  - Colonic pseudo-obstruction [Recovered/Resolved]
